FAERS Safety Report 5941147-8 (Version None)
Quarter: 2008Q4

REPORT INFORMATION
  Report Type: 
  Country: None (occurrence: None)
  Receive Date: 20081104
  Receipt Date: 20081023
  Transmission Date: 20090506
  Serious: Yes (Other)
  Sender: FDA-Public Use
  Company Number: US-PFIZER INC-2008089433

PATIENT
  Age: 55 Year
  Sex: Male

DRUGS (2)
  1. FLUCONAZOLE [Suspect]
  2. AMPHOTERICIN B [Suspect]

REACTIONS (1)
  - COCCIDIOIDOMYCOSIS [None]
